FAERS Safety Report 7943133-5 (Version None)
Quarter: 2011Q4

REPORT INFORMATION
  Report Type: 
  Country: None (occurrence: None)
  Receive Date: 20111128
  Receipt Date: 20111116
  Transmission Date: 20120403
  Serious: Yes (Other)
  Sender: FDA-Public Use
  Company Number: PHHY2011ES100561

PATIENT
  Age: 53 Year
  Sex: Male

DRUGS (2)
  1. RASILEZ [Suspect]
     Indication: HYPERTENSION
     Dosage: 300 MG, UNK
     Route: 048
     Dates: start: 20111102, end: 20111106
  2. ENALAPRIL MALEATE [Concomitant]

REACTIONS (7)
  - EYELID OEDEMA [None]
  - OEDEMA PERIPHERAL [None]
  - ANAPHYLACTIC REACTION [None]
  - URTICARIA [None]
  - ANGIOEDEMA [None]
  - PENILE OEDEMA [None]
  - DISCOMFORT [None]
